FAERS Safety Report 12376499 (Version 1)
Quarter: 2016Q2

REPORT INFORMATION
  Report Type: Spontaneous
  Country: US (occurrence: US)
  Receive Date: 20160517
  Receipt Date: 20160517
  Transmission Date: 20160815
  Serious: No
  Sender: FDA-Public Use
  Company Number: US-TEIKOKU PHARMA USA-TPU2016-00070

PATIENT
  Sex: Female
  Weight: 139.38 kg

DRUGS (2)
  1. VICODIN [Concomitant]
     Active Substance: ACETAMINOPHEN\HYDROCODONE BITARTRATE
     Indication: PAIN
     Dosage: 5 MG/325 MG TABLET
     Route: 048
     Dates: start: 201512
  2. LIDOCAINE PATCH [Suspect]
     Active Substance: LIDOCAINE
     Indication: ARTHRALGIA
     Dosage: APPLY 1/2 -1 PATCH TO EACH KNEE FOR 12 FOR A MAXIMUM OF 12 HOURS
     Route: 061
     Dates: start: 201509

REACTIONS (2)
  - Emotional distress [Not Recovered/Not Resolved]
  - Weight control [Unknown]
